FAERS Safety Report 23195491 (Version 2)
Quarter: 2023Q4

REPORT INFORMATION
  Report Type: Spontaneous
  Country: US (occurrence: US)
  Receive Date: 20231117
  Receipt Date: 20231122
  Transmission Date: 20240109
  Serious: No
  Sender: FDA-Public Use
  Company Number: US-SA-SAC20231114001425

PATIENT
  Age: 29 Year
  Sex: Female
  Weight: 70.3 kg

DRUGS (5)
  1. DUPIXENT [Suspect]
     Active Substance: DUPILUMAB
     Indication: Dermatitis atopic
     Dosage: 300 MG, QOW
     Route: 058
     Dates: start: 20230804
  2. TRIAMCINOLONE [Concomitant]
     Active Substance: TRIAMCINOLONE
     Indication: Pruritus
     Dosage: UNK
     Route: 061
  3. TRIAMCINOLONE [Concomitant]
     Active Substance: TRIAMCINOLONE
     Indication: Rash
  4. TACROLIMUS [Concomitant]
     Active Substance: TACROLIMUS
     Indication: Pruritus
     Dosage: UNK
     Route: 061
  5. TACROLIMUS [Concomitant]
     Active Substance: TACROLIMUS
     Indication: Rash

REACTIONS (2)
  - Therapeutic response decreased [Unknown]
  - Inappropriate schedule of product administration [Unknown]

NARRATIVE: CASE EVENT DATE: 20230101
